FAERS Safety Report 10236438 (Version 2)
Quarter: 2014Q3

REPORT INFORMATION
  Report Type: Spontaneous
  Country: JP (occurrence: JP)
  Receive Date: 20140613
  Receipt Date: 20140728
  Transmission Date: 20150326
  Serious: Yes (Life-Threatening, Other)
  Sender: FDA-Public Use
  Company Number: JP-ALEXION PHARMACEUTICALS INC.-A201402298

PATIENT

DRUGS (4)
  1. BAKTAR [Concomitant]
     Active Substance: SULFAMETHOXAZOLE\TRIMETHOPRIM
     Indication: INFECTION
     Dosage: 1 TABLET, QD
     Route: 048
     Dates: start: 20140331
  2. PREDNISOLONE. [Concomitant]
     Active Substance: PREDNISOLONE
     Indication: PAROXYSMAL NOCTURNAL HAEMOGLOBINURIA
     Dosage: 60 MG, QD
     Route: 048
     Dates: start: 20140331
  3. SOLIRIS [Suspect]
     Active Substance: ECULIZUMAB
     Indication: PAROXYSMAL NOCTURNAL HAEMOGLOBINURIA
     Dosage: 600 MG, QW
     Route: 042
     Dates: start: 20140529, end: 20140529
  4. METHYLPREDNISOLON                  /00049601/ [Concomitant]
     Indication: PAROXYSMAL NOCTURNAL HAEMOGLOBINURIA
     Dosage: 500 MG, QD
     Route: 042
     Dates: start: 20140529, end: 20140531

REACTIONS (4)
  - Escherichia test positive [Unknown]
  - Bacterial sepsis [Unknown]
  - Haemolysis [Unknown]
  - Cardiogenic shock [Recovering/Resolving]

NARRATIVE: CASE EVENT DATE: 201405
